FAERS Safety Report 6697108-7 (Version None)
Quarter: 2010Q2

REPORT INFORMATION
  Report Type: 
  Country: None (occurrence: None)
  Receive Date: 20100426
  Receipt Date: 20100419
  Transmission Date: 20101027
  Serious: Yes (Life-Threatening, Hospitalization, Disabling)
  Sender: FDA-Public Use
  Company Number: MX-JNJFOC-20100406278

PATIENT
  Age: 25 Year
  Sex: Female

DRUGS (1)
  1. ORTHO EVRA [Suspect]
     Indication: CONTRACEPTION
     Dosage: NORELGESTROMIN 6 MG/ ETHINYL ESTRADIOL 0.6 MG
     Route: 062

REACTIONS (2)
  - BRAIN DEATH [None]
  - CEREBRAL THROMBOSIS [None]
